FAERS Safety Report 18706933 (Version 1)
Quarter: 2021Q1

REPORT INFORMATION
  Report Type: Spontaneous
  Country: US (occurrence: US)
  Receive Date: 20210106
  Receipt Date: 20210106
  Transmission Date: 20210419
  Serious: No
  Sender: FDA-Public Use
  Company Number: US-MYLANLABS-2020M1101904

PATIENT
  Age: 31 Year
  Sex: Female
  Weight: 108 kg

DRUGS (1)
  1. MEDROXYPROGESTERONE ACETATE INJECTABLE SUSPENSION USP [Suspect]
     Active Substance: MEDROXYPROGESTERONE ACETATE
     Indication: CONTRACEPTION
     Dosage: FIRST TIME USER
     Route: 030
     Dates: start: 20201204

REACTIONS (1)
  - Expired product administered [Recovering/Resolving]

NARRATIVE: CASE EVENT DATE: 20201204
